FAERS Safety Report 11891634 (Version 2)
Quarter: 2016Q1

REPORT INFORMATION
  Report Type: Spontaneous
  Country: JP (occurrence: JP)
  Receive Date: 20160106
  Receipt Date: 20160111
  Transmission Date: 20160526
  Serious: Yes (Disabling, Other)
  Sender: FDA-Public Use
  Company Number: JP-TEVA-622910ISR

PATIENT
  Age: 50 Year
  Sex: Female

DRUGS (3)
  1. WARFARIN [Suspect]
     Active Substance: WARFARIN
     Indication: ISCHAEMIC ULCER
     Route: 065
  2. SODIUM THIOSULFATE [Suspect]
     Active Substance: SODIUM THIOSULFATE
     Indication: GANGRENE
     Dosage: 25G OVER 60 MIN, 3 TIMES AFTER HEMODIALYSIS
     Route: 041
  3. BERAPROST [Concomitant]
     Active Substance: BERAPROST
     Route: 065

REACTIONS (5)
  - Metabolic acidosis [Recovering/Resolving]
  - Decreased appetite [Recovering/Resolving]
  - Calciphylaxis [Not Recovered/Not Resolved]
  - Condition aggravated [Recovering/Resolving]
  - Nausea [Recovering/Resolving]
